FAERS Safety Report 25622755 (Version 1)
Quarter: 2025Q3

REPORT INFORMATION
  Report Type: Spontaneous
  Country: NZ (occurrence: GB)
  Receive Date: 20250730
  Receipt Date: 20250730
  Transmission Date: 20251021
  Serious: Yes (Other)
  Sender: MYLAN
  Company Number: NZ-MYLANLABS-2025M1063834

PATIENT
  Age: 24 Year
  Sex: Female

DRUGS (1)
  1. CLOZARIL [Suspect]
     Active Substance: CLOZAPINE
     Indication: Schizophrenia
     Dates: start: 20250703, end: 20250724

REACTIONS (3)
  - Neutrophil count decreased [Unknown]
  - Red cell distribution width decreased [Unknown]
  - White blood cell count decreased [Unknown]

NARRATIVE: CASE EVENT DATE: 20250724
